FAERS Safety Report 10722927 (Version 1)
Quarter: 2015Q1

REPORT INFORMATION
  Report Type: Spontaneous
  Country: US (occurrence: US)
  Receive Date: 20150120
  Receipt Date: 20150120
  Transmission Date: 20150721
  Serious: No
  Sender: FDA-Public Use
  Company Number: US-BIOGENIDEC-2015BI005778

PATIENT
  Sex: Female

DRUGS (1)
  1. TECFIDERA [Suspect]
     Active Substance: DIMETHYL FUMARATE
     Indication: MULTIPLE SCLEROSIS
     Route: 048
     Dates: start: 201309, end: 201309

REACTIONS (11)
  - Pain [Unknown]
  - Asthenia [Unknown]
  - General symptom [Unknown]
  - Fatigue [Unknown]
  - Malaise [Unknown]
  - Myalgia [Unknown]
  - Poor quality sleep [Unknown]
  - Off label use [Unknown]
  - Influenza like illness [Unknown]
  - Pyrexia [Unknown]
  - Abdominal pain upper [Unknown]
